FAERS Safety Report 4839505-8 (Version None)
Quarter: 2005Q4

REPORT INFORMATION
  Report Type: 
  Country: None (occurrence: None)
  Receive Date: 20051129
  Receipt Date: 20051004
  Transmission Date: 20060501
  Serious: Yes (Hospitalization, Disabling)
  Sender: FDA-Public Use
  Company Number: US-MERCK-0510USA03133

PATIENT
  Age: 41 Year
  Sex: Male
  Weight: 118 kg

DRUGS (5)
  1. VIOXX [Suspect]
     Indication: LIMB INJURY
     Route: 048
     Dates: start: 19990101, end: 20040901
  2. VIOXX [Suspect]
     Indication: JOINT INJURY
     Route: 048
     Dates: start: 19990101, end: 20040901
  3. LOPID [Concomitant]
     Route: 065
  4. PRINIVIL [Concomitant]
     Route: 065
  5. NEXIUM [Concomitant]
     Route: 065

REACTIONS (6)
  - ARTERIAL THROMBOSIS [None]
  - GASTRIC DISORDER [None]
  - JOINT INJURY [None]
  - MYOCARDIAL INFARCTION [None]
  - NERVOUSNESS [None]
  - SINUSITIS [None]
